FAERS Safety Report 21872198 (Version 3)
Quarter: 2023Q1

REPORT INFORMATION
  Report Type: Spontaneous
  Country: US (occurrence: US)
  Receive Date: 20230117
  Receipt Date: 20230227
  Transmission Date: 20230418
  Serious: No
  Sender: FDA-Public Use
  Company Number: US-PFIZER INC-2017411528

PATIENT
  Age: 72 Year
  Sex: Female
  Weight: 69.841 kg

DRUGS (3)
  1. PREMPRO [Suspect]
     Active Substance: ESTROGENS, CONJUGATED\MEDROXYPROGESTERONE ACETATE
     Indication: Hormone replacement therapy
     Dosage: 1 DF, DAILY [ESTROGENS CONJUGATED 0.625 MG] [MEDROXYPROGESTERONE ACETATE 2.5 MG]
     Route: 048
  2. PREMPRO [Suspect]
     Active Substance: ESTROGENS, CONJUGATED\MEDROXYPROGESTERONE ACETATE
     Indication: Hot flush
     Dosage: STRENGTH:0.3-1.5 MG; QUANTITY FOR 90 DAYS:90
     Route: 048
  3. PREMPRO [Suspect]
     Active Substance: ESTROGENS, CONJUGATED\MEDROXYPROGESTERONE ACETATE
     Indication: Postmenopause

REACTIONS (2)
  - Bronchitis [Not Recovered/Not Resolved]
  - Product prescribing error [Unknown]
